FAERS Safety Report 12285415 (Version 1)
Quarter: 2016Q2

REPORT INFORMATION
  Report Type: Spontaneous
  Country: US (occurrence: US)
  Receive Date: 20160420
  Receipt Date: 20160420
  Transmission Date: 20160815
  Serious: No
  Sender: FDA-Public Use
  Company Number: US-DRREDDYS-USA/USA/16/0055283

PATIENT
  Age: 27 Year
  Sex: Female
  Weight: 56.6 kg

DRUGS (1)
  1. ZENATANE [Suspect]
     Active Substance: ISOTRETINOIN
     Indication: ACNE
     Route: 048
     Dates: start: 20151226

REACTIONS (2)
  - Lip dry [Not Recovered/Not Resolved]
  - Fungal infection [Not Recovered/Not Resolved]
